FAERS Safety Report 21636377 (Version 1)
Quarter: 2022Q4

REPORT INFORMATION
  Report Type: Other
  Country: US (occurrence: US)
  Receive Date: 20221124
  Receipt Date: 20221124
  Transmission Date: 20230113
  Serious: No
  Sender: FDA-Public Use
  Company Number: US-TOLMAR, INC.-22US037597

PATIENT
  Age: 11 Year

DRUGS (1)
  1. FENSOLVI [Suspect]
     Active Substance: LEUPROLIDE ACETATE
     Indication: Gender dysphoria
     Dosage: 45 MILLIGRAM

REACTIONS (1)
  - Off label use [Unknown]

NARRATIVE: CASE EVENT DATE: 20211223
